FAERS Safety Report 7527829-5 (Version None)
Quarter: 2011Q2

REPORT INFORMATION
  Report Type: 
  Country: None (occurrence: None)
  Receive Date: 20110607
  Receipt Date: 20110531
  Transmission Date: 20111010
  Serious: Yes (Other)
  Sender: FDA-Public Use
  Company Number: CA-PFIZER INC-2011118342

PATIENT
  Age: 74 Year
  Sex: Female

DRUGS (2)
  1. XALATAN [Suspect]
     Indication: GLAUCOMA
     Dosage: 1 DROP IN BOTH EYES, 1X/DAY
     Route: 047
     Dates: start: 20090101
  2. SINEMET [Concomitant]
     Indication: PARKINSON'S DISEASE
     Dosage: 1 DF, 3X/DAY
     Route: 048
     Dates: start: 20110401

REACTIONS (1)
  - INTRAOCULAR PRESSURE INCREASED [None]
